FAERS Safety Report 8988531 (Version 1)
Quarter: 2012Q4

REPORT INFORMATION
  Report Type: 
  Country: FR (occurrence: None)
  Receive Date: 20121218
  Receipt Date: 20121218
  Transmission Date: 20130627
  Serious: Yes (Hospitalization)
  Sender: FDA-Public Use
  Company Number: 2012SP004792

PATIENT
  Age: 83 Year
  Sex: Male

DRUGS (5)
  1. VANCOMYCIN [Suspect]
     Route: 042
     Dates: start: 20120701, end: 20120903
  2. CEFTRIAXONE SODIUM [Suspect]
     Route: 051
     Dates: start: 20120701, end: 20120718
  3. CEFTAZIDIME [Suspect]
     Route: 042
     Dates: start: 20120718, end: 20120903
  4. GENTAMICIN SULPHATE [Suspect]
     Route: 042
     Dates: start: 20120701, end: 20120718
  5. HORMONES [Concomitant]

REACTIONS (3)
  - Peripheral motor neuropathy [None]
  - Arterial occlusive disease [None]
  - Liver disorder [None]
